FAERS Safety Report 10049500 (Version 2)
Quarter: 2014Q2

REPORT INFORMATION
  Report Type: Spontaneous
  Country: US (occurrence: US)
  Receive Date: 20140401
  Receipt Date: 20140401
  Transmission Date: 20141212
  Serious: Yes (Other)
  Sender: FDA-Public Use
  Company Number: US-SA-POMP-1000220

PATIENT
  Age: 9 Year
  Sex: Female

DRUGS (5)
  1. MYOZYME [Suspect]
     Indication: GLYCOGEN STORAGE DISEASE TYPE II
     Dosage: 20 MG/KG, Q2W
     Route: 042
     Dates: start: 20080111
  2. MYOZYME [Suspect]
     Indication: GLYCOGEN STORAGE DISEASE TYPE II
     Route: 042
  3. PREDNISONE [Concomitant]
     Indication: PREMEDICATION
     Dosage: 5 MG, ONCE
     Route: 048
     Dates: start: 20080602, end: 20080602
  4. DIPHENHYDRAMINE HYDROCHLORIDE [Concomitant]
     Indication: PREMEDICATION
     Dosage: 25 MG, QD
     Route: 048
     Dates: start: 20080602, end: 20080603
  5. METHYLPREDNISOLONE SODIUM SUCCINATE [Concomitant]
     Indication: PREMEDICATION
     Dosage: .5 MG, ONCE
     Route: 048
     Dates: start: 20080603, end: 20080603

REACTIONS (13)
  - Serum sickness [Recovered/Resolved]
  - Joint swelling [Recovered/Resolved]
  - Arthralgia [Recovered/Resolved]
  - Vomiting [Recovered/Resolved]
  - Headache [Recovered/Resolved]
  - Angioedema [Recovered/Resolved]
  - Bronchospasm [Recovered/Resolved]
  - Angioedema [Recovered/Resolved]
  - Dysgeusia [Recovered/Resolved]
  - Epistaxis [Recovered/Resolved]
  - Migraine [Not Recovered/Not Resolved]
  - Flushing [Recovered/Resolved]
  - Vomiting [Recovered/Resolved]
